FAERS Safety Report 7210763-8 (Version None)
Quarter: 2011Q1

REPORT INFORMATION
  Report Type: 
  Country: None (occurrence: None)
  Receive Date: 20110105
  Receipt Date: 20101228
  Transmission Date: 20110831
  Serious: Yes (Other)
  Sender: FDA-Public Use
  Company Number: US-PFIZER INC-US-WYE-H09481309

PATIENT
  Sex: Female
  Weight: 80 kg

DRUGS (2)
  1. FEMHRT [Suspect]
     Indication: HORMONE REPLACEMENT THERAPY
     Dosage: 1MG/5MCG UNK
     Route: 048
     Dates: start: 20000101, end: 20070301
  2. PREMPRO [Suspect]
     Indication: HORMONE REPLACEMENT THERAPY
     Dosage: 0.625MG/2.5MG , UNK
     Route: 048
     Dates: start: 19960101, end: 20000101

REACTIONS (1)
  - BREAST CANCER [None]
